FAERS Safety Report 6122573-3 (Version None)
Quarter: 2009Q1

REPORT INFORMATION
  Report Type: 
  Country: None (occurrence: None)
  Receive Date: 20090318
  Receipt Date: 20090316
  Transmission Date: 20090719
  Serious: Yes (Death, Other)
  Sender: FDA-Public Use
  Company Number: GB-BRISTOL-MYERS SQUIBB COMPANY-13895560

PATIENT
  Age: 35 Year
  Sex: Male
  Weight: 65 kg

DRUGS (14)
  1. FUNGIZONE [Suspect]
     Indication: PNEUMONIA
     Route: 042
     Dates: start: 20070720, end: 20070721
  2. FUNGIZONE [Suspect]
     Indication: SYSTEMIC MYCOSIS
     Route: 042
     Dates: start: 20070720, end: 20070721
  3. CYCLOPHOSPHAMIDE [Concomitant]
     Indication: HIGH GRADE B-CELL LYMPHOMA BURKITT-LIKE LYMPHOMA
     Dosage: JUNE 2007
     Route: 065
     Dates: start: 20070401
  4. CYCLOPHOSPHAMIDE [Concomitant]
     Indication: DIFFUSE LARGE B-CELL LYMPHOMA
     Dosage: JUNE 2007
     Route: 065
     Dates: start: 20070401
  5. VINCRISTINE [Concomitant]
     Indication: HIGH GRADE B-CELL LYMPHOMA BURKITT-LIKE LYMPHOMA
     Dosage: JUNE 2007
     Route: 065
     Dates: start: 20070401
  6. VINCRISTINE [Concomitant]
     Indication: DIFFUSE LARGE B-CELL LYMPHOMA
     Dosage: JUNE 2007
     Route: 065
     Dates: start: 20070401
  7. DOXORUBICIN HCL [Concomitant]
     Indication: HIGH GRADE B-CELL LYMPHOMA BURKITT-LIKE LYMPHOMA
     Dosage: JUNE 2007
     Route: 065
     Dates: start: 20070401
  8. DOXORUBICIN HCL [Concomitant]
     Indication: DIFFUSE LARGE B-CELL LYMPHOMA
     Dosage: JUNE 2007
     Route: 065
     Dates: start: 20070401
  9. METHOTREXATE [Concomitant]
     Indication: HIGH GRADE B-CELL LYMPHOMA BURKITT-LIKE LYMPHOMA
     Route: 065
     Dates: start: 20070601
  10. CISPLATIN [Concomitant]
     Indication: DIFFUSE LARGE B-CELL LYMPHOMA
     Route: 065
     Dates: start: 20070501
  11. CYTARABINE [Concomitant]
     Indication: DIFFUSE LARGE B-CELL LYMPHOMA
     Route: 065
     Dates: start: 20070501
  12. DEXAMETHASONE TAB [Concomitant]
     Indication: DIFFUSE LARGE B-CELL LYMPHOMA
     Route: 065
     Dates: start: 20070501
  13. PREDNISOLONE [Concomitant]
     Indication: DIFFUSE LARGE B-CELL LYMPHOMA
     Route: 065
     Dates: start: 20070401
  14. RITUXIMAB [Concomitant]
     Indication: DIFFUSE LARGE B-CELL LYMPHOMA
     Dosage: 05/2007
     Route: 065
     Dates: start: 20070401

REACTIONS (9)
  - CARDIAC ARREST [None]
  - HYPOGLYCAEMIA [None]
  - HYPOXIA [None]
  - MEDICATION ERROR [None]
  - NEUROPATHY PERIPHERAL [None]
  - OVERDOSE [None]
  - RENAL IMPAIRMENT [None]
  - STRIDOR [None]
  - TACHYCARDIA [None]
